FAERS Safety Report 24429702 (Version 1)
Quarter: 2024Q4

REPORT INFORMATION
  Report Type: Spontaneous
  Country: US (occurrence: US)
  Receive Date: 20241012
  Receipt Date: 20241012
  Transmission Date: 20250115
  Serious: Yes (Hospitalization, Other)
  Sender: BRISTOL MYERS SQUIBB
  Company Number: US-BRISTOL-MYERS SQUIBB COMPANY-2024-160050

PATIENT
  Age: 81 Year
  Sex: Male
  Weight: 99.34 kg

DRUGS (14)
  1. NIVOLUMAB [Suspect]
     Active Substance: NIVOLUMAB
     Indication: Metastatic malignant melanoma
     Dates: start: 20240805
  2. ASPIRIN [Concomitant]
     Active Substance: ASPIRIN
     Route: 048
  3. VITAMINS [Concomitant]
     Active Substance: VITAMINS
     Route: 048
  4. COREG [Concomitant]
     Active Substance: CARVEDILOL
     Dosage: TAKE ONE TABLET BY MOUTH TWICE DAILY WITH MEALS. TAKE WITH FOOD
     Route: 048
  5. ZYRTEC [Concomitant]
     Active Substance: CETIRIZINE HYDROCHLORIDE
     Route: 048
  6. VITAMIN D3 [Concomitant]
     Active Substance: CHOLECALCIFEROL
     Dosage: 1,000 UNITS
     Route: 048
  7. VITAMIN D2 [Concomitant]
     Active Substance: ERGOCALCIFEROL
     Dosage: TAKE 2,000 UNITS BY MAUTH DAILY
     Route: 048
  8. TAMBOCOR [Concomitant]
     Active Substance: FLECAINIDE ACETATE
     Dosage: TAKE ONE TABLET BY MOUTH TWICE DAILY.
     Route: 048
  9. LASIX [Concomitant]
     Active Substance: FUROSEMIDE
     Dosage: TAKE ONE TABLET BY MOUTH EVERY MORNING
     Route: 048
  10. COZAAR [Concomitant]
     Active Substance: LOSARTAN POTASSIUM
     Route: 048
  11. GLUCOPHAGE [Concomitant]
     Active Substance: METFORMIN HYDROCHLORIDE
     Dosage: TAKE ONE TABLET BY MOUTH TWICE DAILY WITH MEALS.
     Route: 048
  12. MYRBETRIQ [Concomitant]
     Active Substance: MIRABEGRON
     Route: 048
  13. ZOCOR [Concomitant]
     Active Substance: SIMVASTATIN
     Dosage: TAKE ONE TABLET BY MOUTH AT BEDTIME DAILY.
     Route: 048
  14. SANCTURA [Concomitant]
     Active Substance: TROSPIUM CHLORIDE
     Dosage: TAKE ONE TABLET BY MOUTH TWICE DAILY BEFORE MEALS. TAKE WITH WATER ON AN EMPTY STOMACH, AT LEAST 1 H
     Route: 048

REACTIONS (3)
  - Immune-mediated myasthenia gravis [Unknown]
  - Immune-mediated myositis [Unknown]
  - Immune-mediated myocarditis [Unknown]

NARRATIVE: CASE EVENT DATE: 20240801
